FAERS Safety Report 9247355 (Version 1)
Quarter: 2013Q2

REPORT INFORMATION
  Report Type: Spontaneous
  Country: FR (occurrence: FR)
  Receive Date: 20130423
  Receipt Date: 20130423
  Transmission Date: 20140414
  Serious: Yes (Hospitalization)
  Sender: FDA-Public Use
  Company Number: FR-JNJFOC-20130409997

PATIENT
  Age: 63 Year
  Sex: Female

DRUGS (15)
  1. XARELTO [Suspect]
     Indication: CEREBROVASCULAR ACCIDENT PROPHYLAXIS
     Route: 048
     Dates: start: 20130307, end: 20130310
  2. XARELTO [Suspect]
     Indication: ATRIAL FIBRILLATION
     Route: 048
     Dates: start: 20130307, end: 20130310
  3. XARELTO [Suspect]
     Indication: ARRHYTHMIA
     Route: 048
     Dates: start: 20130307, end: 20130310
  4. CORDARONE [Suspect]
     Indication: CEREBROVASCULAR ACCIDENT PROPHYLAXIS
     Route: 065
     Dates: start: 20130307
  5. CORDARONE [Suspect]
     Indication: ATRIAL FIBRILLATION
     Route: 065
     Dates: start: 20130307
  6. CORDARONE [Suspect]
     Indication: ARRHYTHMIA
     Route: 065
     Dates: start: 20130307
  7. DIGOXINE [Suspect]
     Indication: CEREBROVASCULAR ACCIDENT PROPHYLAXIS
     Route: 065
     Dates: start: 20130307, end: 20130404
  8. DIGOXINE [Suspect]
     Indication: ATRIAL FIBRILLATION
     Route: 065
     Dates: start: 20130307, end: 20130404
  9. DIGOXINE [Suspect]
     Indication: ARRHYTHMIA
     Route: 065
     Dates: start: 20130307, end: 20130404
  10. LACOSAMIDE [Suspect]
     Indication: EPILEPSY
     Route: 065
     Dates: start: 20120601, end: 20130404
  11. PREVISCAN (FLUINDIONE) [Suspect]
     Indication: CEREBROVASCULAR ACCIDENT PROPHYLAXIS
     Route: 065
     Dates: start: 20130310
  12. PREVISCAN (FLUINDIONE) [Suspect]
     Indication: ATRIAL FIBRILLATION
     Route: 065
     Dates: start: 20130310
  13. PREVISCAN (FLUINDIONE) [Suspect]
     Indication: ARRHYTHMIA
     Route: 065
     Dates: start: 20130310
  14. TEGRETOL [Concomitant]
     Indication: EPILEPSY
     Route: 065
  15. RIVOTRIL [Concomitant]
     Indication: EPILEPSY
     Route: 065

REACTIONS (4)
  - Dizziness [Not Recovered/Not Resolved]
  - Headache [Not Recovered/Not Resolved]
  - Vomiting [Not Recovered/Not Resolved]
  - Nausea [Not Recovered/Not Resolved]
